FAERS Safety Report 8880520 (Version 1)
Quarter: 2012Q4

REPORT INFORMATION
  Report Type: 
  Country: BR (occurrence: BR)
  Receive Date: 20121031
  Receipt Date: 20121031
  Transmission Date: 20130627
  Serious: Yes (Death, Life-Threatening, Hospitalization)
  Sender: FDA-Public Use
  Company Number: BR-ASTRAZENECA-2012SE51902

PATIENT
  Sex: Female

DRUGS (3)
  1. SEROQUEL XR [Suspect]
     Indication: DEPRESSION
     Route: 048
     Dates: start: 201207, end: 20120721
  2. SEROQUEL XR [Suspect]
     Indication: DEPRESSION
     Route: 048
     Dates: start: 201208
  3. UNKNOWN [Concomitant]
     Indication: SEDATIVE THERAPY
     Route: 048

REACTIONS (3)
  - Pulmonary embolism [Fatal]
  - Coma [Recovered/Resolved]
  - Suicide attempt [Recovered/Resolved]
